FAERS Safety Report 8899163 (Version 2)
Quarter: 2014Q1

REPORT INFORMATION
  Report Type: Spontaneous
  Country: AR (occurrence: AR)
  Receive Date: 20121109
  Receipt Date: 20140306
  Transmission Date: 20141002
  Serious: Yes (Other)
  Sender: FDA-Public Use
  Company Number: PHHY2012AR101864

PATIENT
  Sex: Male

DRUGS (1)
  1. ACETYLSALICYLIC ACID [Suspect]

REACTIONS (6)
  - Asthma [Unknown]
  - Nasal polyps [Unknown]
  - Sinus polyp [Unknown]
  - Drug hypersensitivity [Unknown]
  - Eosinophilia [Unknown]
  - Conjunctivitis [Unknown]
